FAERS Safety Report 4893412-3 (Version None)
Quarter: 2006Q1

REPORT INFORMATION
  Report Type: 
  Country: None (occurrence: None)
  Receive Date: 20060127
  Receipt Date: 20060119
  Transmission Date: 20060701
  Serious: Yes (Death, Other)
  Sender: FDA-Public Use
  Company Number: PHFR2006GB00598

PATIENT
  Age: 50 Year
  Sex: Male
  Weight: 70 kg

DRUGS (7)
  1. DICLOFENAC [Suspect]
     Indication: POST HERPETIC NEURALGIA
     Dosage: 50 MG, Q8H
     Route: 065
     Dates: start: 20051219, end: 20051226
  2. VIREAD [Suspect]
     Indication: HIV INFECTION
     Dosage: 245 MG/DAY
     Route: 048
     Dates: start: 20041116, end: 20051127
  3. DIDANOSINE [Suspect]
     Indication: HIV INFECTION
     Dosage: 400 MG/DAY
     Route: 048
     Dates: start: 20041116, end: 20051227
  4. ZIDOVUDINE (NGX) [Suspect]
     Indication: HIV INFECTION
     Dosage: 250 MG/DAY
     Route: 048
     Dates: start: 20051212, end: 20051227
  5. KALETRA [Suspect]
     Indication: HIV INFECTION
     Dosage: 30 CAPS BID
     Route: 048
     Dates: start: 20041116, end: 20051227
  6. GABAPENTIN [Concomitant]
     Indication: POST HERPETIC NEURALGIA
     Dosage: 600 MG, Q8H
     Route: 048
     Dates: start: 20051123, end: 20051226
  7. MORPHINE SULFATE [Concomitant]
     Indication: POST HERPETIC NEURALGIA
     Dosage: 5 MG, BID
     Route: 048
     Dates: start: 20051123, end: 20051226

REACTIONS (3)
  - LACTIC ACIDOSIS [None]
  - RENAL FAILURE ACUTE [None]
  - VOMITING [None]
